FAERS Safety Report 9975231 (Version 1)
Quarter: 2014Q1

REPORT INFORMATION
  Report Type: Report from Study
  Country: US (occurrence: US)
  Receive Date: 20140306
  Receipt Date: 20140306
  Transmission Date: 20141002
  Serious: No
  Sender: FDA-Public Use
  Company Number: US-ABBVIE-13P-163-1161567-00

PATIENT
  Age: 62 Year
  Sex: Female

DRUGS (4)
  1. HUMIRA [Suspect]
     Indication: ANKYLOSING SPONDYLITIS
     Dates: start: 20130925
  2. LEVOXYL [Concomitant]
     Indication: HYPOTHYROIDISM
  3. LISINOPRIL [Concomitant]
     Indication: HYPERTENSION
     Dates: end: 20131106
  4. LISINOPRIL [Concomitant]
     Dates: start: 20131107

REACTIONS (6)
  - Nervousness [Not Recovered/Not Resolved]
  - Musculoskeletal stiffness [Not Recovered/Not Resolved]
  - Injection site pain [Not Recovered/Not Resolved]
  - Stress [Not Recovered/Not Resolved]
  - Wrong technique in drug usage process [Not Recovered/Not Resolved]
  - Incorrect dose administered [Not Recovered/Not Resolved]
